FAERS Safety Report 18370276 (Version 2)
Quarter: 2020Q4

REPORT INFORMATION
  Report Type: Report from Study
  Country: BR (occurrence: BR)
  Receive Date: 20201012
  Receipt Date: 20201102
  Transmission Date: 20210114
  Serious: Yes (Other)
  Sender: FDA-Public Use
  Company Number: BR-BRISTOL-MYERS SQUIBB COMPANY-BMS-2020-057648

PATIENT
  Sex: Female

DRUGS (6)
  1. CORUS H [Concomitant]
     Active Substance: HYDROCHLOROTHIAZIDE\LOSARTAN POTASSIUM
     Indication: PRODUCT USED FOR UNKNOWN INDICATION
     Route: 065
  2. CHLORTALIDONE [Concomitant]
     Active Substance: CHLORTHALIDONE
     Indication: PRODUCT USED FOR UNKNOWN INDICATION
     Route: 065
  3. LOSARTAN. [Concomitant]
     Active Substance: LOSARTAN
     Indication: PRODUCT USED FOR UNKNOWN INDICATION
     Route: 065
  4. HYDRALAZINE [Concomitant]
     Active Substance: HYDRALAZINE HYDROCHLORIDE
     Indication: PRODUCT USED FOR UNKNOWN INDICATION
     Route: 065
  5. ABATACEPT [Suspect]
     Active Substance: ABATACEPT
     Indication: RHEUMATOID ARTHRITIS
     Dosage: THREE 250MG VIALS, EVERY 28 DAYS
     Route: 042
     Dates: start: 2019, end: 202007
  6. PREDNISOLONE. [Suspect]
     Active Substance: PREDNISOLONE
     Indication: PRODUCT USED FOR UNKNOWN INDICATION
     Dosage: 20 MILLIGRAM DAILY
     Route: 065
     Dates: start: 2019, end: 2019

REACTIONS (6)
  - Carpal tunnel syndrome [Unknown]
  - Pancreatic disorder [Unknown]
  - Pneumonia [Recovered/Resolved]
  - Hepatic steatosis [Recovered/Resolved]
  - Diabetes mellitus [Recovered/Resolved]
  - Pulmonary pain [Recovered/Resolved]

NARRATIVE: CASE EVENT DATE: 2019
